FAERS Safety Report 23673153 (Version 2)
Quarter: 2024Q2

REPORT INFORMATION
  Report Type: Spontaneous
  Country: US (occurrence: US)
  Receive Date: 20240326
  Receipt Date: 20240426
  Transmission Date: 20240716
  Serious: Yes (Other)
  Sender: FDA-Public Use
  Company Number: US-IPSEN Group, Research and Development-2024-04759

PATIENT
  Age: 42 Year
  Sex: Female

DRUGS (1)
  1. SOMATULINE DEPOT [Suspect]
     Active Substance: LANREOTIDE ACETATE
     Indication: Acromegaly
     Dosage: UNDER THE SKIN
     Route: 058

REACTIONS (7)
  - Hysterectomy [Unknown]
  - Insulin resistant diabetes [Unknown]
  - Bradycardia [Unknown]
  - Cholelithiasis [Recovered/Resolved]
  - Tachycardia [Unknown]
  - Diverticulum [Unknown]
  - Peripheral swelling [Unknown]

NARRATIVE: CASE EVENT DATE: 20190101
